FAERS Safety Report 4913782-7 (Version None)
Quarter: 2006Q1

REPORT INFORMATION
  Report Type: 
  Country: None (occurrence: None)
  Receive Date: 20060216
  Receipt Date: 20060126
  Transmission Date: 20060701
  Serious: Yes (Hospitalization)
  Sender: FDA-Public Use
  Company Number: FR-GLAXOSMITHKLINE-B0408754A

PATIENT
  Age: 84 Year
  Sex: Female

DRUGS (3)
  1. AVANDAMET [Suspect]
     Indication: DIABETES MELLITUS NON-INSULIN-DEPENDENT
     Route: 048
     Dates: start: 20050801
  2. COZAAR [Concomitant]
     Route: 048
  3. TANAKAN [Concomitant]
     Route: 048

REACTIONS (8)
  - ACUTE PULMONARY OEDEMA [None]
  - DYSPNOEA [None]
  - ERYTHEMA [None]
  - GLYCOSYLATED HAEMOGLOBIN INCREASED [None]
  - HEADACHE [None]
  - MALAISE [None]
  - OEDEMA PERIPHERAL [None]
  - RESPIRATORY DISORDER [None]
